FAERS Safety Report 9750229 (Version 1)
Quarter: 2013Q4

REPORT INFORMATION
  Report Type: Spontaneous
  Country: IT (occurrence: IT)
  Receive Date: 20131212
  Receipt Date: 20131212
  Transmission Date: 20140711
  Serious: Yes (Hospitalization)
  Sender: FDA-Public Use
  Company Number: IT-GLAXOSMITHKLINE-B0951968A

PATIENT
  Age: 75 Year
  Sex: Female

DRUGS (9)
  1. SEREUPIN [Suspect]
     Indication: BIPOLAR DISORDER
     Dosage: 20MG PER DAY
     Route: 048
     Dates: start: 20130501, end: 20131203
  2. CARBOLITHIUM [Suspect]
     Indication: BIPOLAR DISORDER
     Dosage: 450MG PER DAY
     Route: 048
     Dates: start: 20130501, end: 20131203
  3. LIMBITRYL [Suspect]
     Indication: BIPOLAR DISORDER
     Dosage: 37.5MG PER DAY
     Route: 048
     Dates: start: 20130501, end: 20131203
  4. VANCOMYCIN [Concomitant]
     Indication: BRONCHOPNEUMOPATHY
     Route: 042
     Dates: start: 20131130, end: 20131202
  5. MERREM [Concomitant]
     Indication: BRONCHOPNEUMOPATHY
     Dosage: 3G PER DAY
     Route: 042
     Dates: start: 20131129, end: 20131203
  6. LANSOX [Concomitant]
     Route: 065
  7. CLEXANE [Concomitant]
     Route: 065
  8. TAPAZOLE [Concomitant]
     Route: 065
  9. BRONCOVALEAS [Concomitant]
     Route: 065

REACTIONS (1)
  - Sopor [Not Recovered/Not Resolved]
